FAERS Safety Report 21516641 (Version 1)
Quarter: 2022Q4

REPORT INFORMATION
  Report Type: Spontaneous
  Country: US (occurrence: None)
  Receive Date: 20221027
  Receipt Date: 20221027
  Transmission Date: 20230113
  Serious: No
  Sender: FDA-Public Use
  Company Number: None

PATIENT
  Age: 42 Year
  Sex: Female

DRUGS (6)
  1. ADBRY [Suspect]
     Active Substance: TRALOKINUMAB-LDRM
     Indication: Dermatitis atopic
     Dosage: OTHER FREQUENCY : DAY 1;?
     Route: 058
     Dates: start: 20220921
  2. LOSARTAN POTASSIUM [Concomitant]
     Active Substance: LOSARTAN POTASSIUM
  3. HYDROCORTISONE [Concomitant]
  4. METOPROLOL SUCCINATE [Concomitant]
  5. AMLODIPINE BESILATE POWDER [Concomitant]
  6. PAROXETINE CREAM [Concomitant]

REACTIONS (2)
  - Device malfunction [None]
  - Drug dose omission by device [None]

NARRATIVE: CASE EVENT DATE: 20221021
